FAERS Safety Report 7581020-5 (Version None)
Quarter: 2011Q2

REPORT INFORMATION
  Report Type: 
  Country: None (occurrence: None)
  Receive Date: 20110629
  Receipt Date: 20110624
  Transmission Date: 20111010
  Serious: Yes (Other)
  Sender: FDA-Public Use
  Company Number: US-PFIZER INC-2011062592

PATIENT
  Sex: Male
  Weight: 90.703 kg

DRUGS (14)
  1. LISINOPRIL AND HYDROCHLOROTHIAZIDE [Concomitant]
     Indication: CARDIAC DISORDER
     Dosage: UNK
  2. HYDROCHLOROTHIAZIDE [Concomitant]
     Indication: HYPERTENSION
     Dosage: 12.5 MG, 1X/DAY
     Route: 048
  3. VENTOLIN HFA [Concomitant]
     Indication: ASTHMA
     Dosage: UNK
  4. CHANTIX [Suspect]
     Indication: SMOKING CESSATION THERAPY
     Dosage: 0.5 MG, 1X/DAY
     Route: 048
     Dates: start: 20110223
  5. TRAZODONE [Concomitant]
     Dosage: UNK
  6. ATENOLOL [Concomitant]
     Dosage: UNK
  7. CLOZAPINE [Concomitant]
  8. CHANTIX [Suspect]
     Dosage: 1 MG, 2X/DAY
     Route: 048
  9. ATENOLOL [Concomitant]
     Indication: HYPERTENSION
     Dosage: 50 MG, 2X/DAY
     Route: 048
  10. DOXYCYCLINE [Concomitant]
     Dosage: 100 MG, 2X/DAY
  11. TRIHEXYPHENIDYL [Concomitant]
     Dosage: UNK
  12. IBUPROFEN [Concomitant]
     Dosage: UNK
  13. OMEPRAZOLE [Concomitant]
     Dosage: UNK
  14. NASONEX [Concomitant]
     Dosage: UNK

REACTIONS (5)
  - ANGER [None]
  - HALLUCINATION [None]
  - CONFUSIONAL STATE [None]
  - ANXIETY [None]
  - BLOOD PRESSURE ABNORMAL [None]
